FAERS Safety Report 18611073 (Version 1)
Quarter: 2020Q4

REPORT INFORMATION
  Report Type: Spontaneous
  Country: LU (occurrence: LU)
  Receive Date: 20201214
  Receipt Date: 20201214
  Transmission Date: 20210114
  Serious: Yes (Other)
  Sender: FDA-Public Use
  Company Number: LU-PFIZER INC-2020486808

PATIENT
  Age: 38 Year
  Sex: Male
  Weight: 48 kg

DRUGS (22)
  1. CIPROFLOXACINE KABI [Suspect]
     Active Substance: CIPROFLOXACIN
     Dosage: 400 MG,  FREQ:12 H;
     Route: 042
     Dates: start: 20201019, end: 20201111
  2. FORTECORTIN [DEXAMETHASONE] [Concomitant]
     Active Substance: DEXAMETHASONE
     Indication: COVID-19
     Dosage: 8 MG, DAILY
     Route: 042
     Dates: start: 20201022, end: 20201104
  3. CREON [Concomitant]
     Active Substance: PANCRELIPASE AMYLASE\PANCRELIPASE LIPASE\PANCRELIPASE PROTEASE
     Indication: PANCREATIC FAILURE
     Dosage: 1 OR 2 CAPSULES 3 TIMES PER DAY
     Route: 048
  4. CAYSTON [Concomitant]
     Active Substance: AZTREONAM
     Dosage: 75 MG , FREQ:8 H;
     Route: 055
  5. LEVOPHED [Suspect]
     Active Substance: NOREPINEPHRINE BITARTRATE
     Indication: CHEMOTHERAPY CYTOKINE PROPHYLAXIS
     Dosage: 0.12 UG/KG FREQ:1 MIN;
     Route: 042
     Dates: start: 20201019, end: 20201106
  6. OBRACIN [Suspect]
     Active Substance: TOBRAMYCIN
     Indication: RESPIRATORY TRACT INFECTION
     Dosage: 385 MG, UNK
     Route: 042
     Dates: start: 20201030, end: 20201111
  7. NEXIAM [ESOMEPRAZOLE SODIUM] [Concomitant]
     Active Substance: ESOMEPRAZOLE SODIUM
     Dosage: 40 MG DAILY,  LONG TERM TREATMENT, ONGOING
     Route: 042
  8. DUOVENT [Concomitant]
     Active Substance: FENOTEROL HYDROBROMIDE
     Dosage: 1 DF FREQ:6 H;
     Route: 055
     Dates: start: 20201019
  9. PARACETAMOL B BRAUN [Concomitant]
     Active Substance: ACETAMINOPHEN
     Dosage: 1 G, FREQ:6 H;
     Route: 042
     Dates: start: 20201019
  10. MEROPENEM KABI [Suspect]
     Active Substance: MEROPENEM
     Dosage: 2 G, FREQ:8 H;
     Route: 042
     Dates: start: 20201022, end: 20201111
  11. MOVICOL [Suspect]
     Active Substance: POLYETHYLENE GLYCOL 3350\POTASSIUM CHLORIDE\SODIUM BICARBONATE\SODIUM CHLORIDE
     Dosage: 1 DF, FREQ:12 H;
     Route: 048
     Dates: start: 20201026, end: 20201109
  12. LYSOMUCIL [Suspect]
     Active Substance: ACETYLCYSTEINE
     Dosage: 300 MG FREQ:6 H;
     Route: 042
     Dates: start: 20201031, end: 20201109
  13. COLISTINEB [Suspect]
     Active Substance: COLISTIMETHATE SODIUM
     Dosage: 2 *10*6.IU, FREQ: 12 H
     Route: 055
     Dates: start: 20201104
  14. ZITHROMAX [Concomitant]
     Active Substance: AZITHROMYCIN DIHYDRATE
     Dosage: 750MG WEEKLY (250 MG ON MONDAYS, WEDNESDAYS AND FRIDAYS)
     Route: 048
  15. MIDAZOLAM B BRAUN [Suspect]
     Active Substance: MIDAZOLAM HYDROCHLORIDE
     Indication: SEDATION
     Dosage: 2 MG , FREQ:1 H;
     Route: 042
     Dates: start: 20201027, end: 20201106
  16. DEXDOR [Suspect]
     Active Substance: DEXMEDETOMIDINE HYDROCHLORIDE
     Indication: SEDATION
     Dosage: 0.8 UG/KG, DAILY
     Route: 042
     Dates: start: 20201020, end: 20201106
  17. CLEXANE [Concomitant]
     Active Substance: ENOXAPARIN SODIUM
     Dosage: 40 MG, DAILY
     Route: 058
     Dates: start: 20201019, end: 20201022
  18. VANCOMYCINE [VANCOMYCIN] [Suspect]
     Active Substance: VANCOMYCIN
     Dosage: 2 G, DAILY
     Route: 042
     Dates: start: 20201019, end: 20201111
  19. LASIX [Suspect]
     Active Substance: FUROSEMIDE
     Dosage: 20 MG FREQ:12 H;
     Route: 042
     Dates: start: 20201023, end: 20201108
  20. ACTRAPID [Concomitant]
     Active Substance: INSULIN HUMAN
     Dosage: 1.5 IU, FREQ:1 H;
     Route: 058
  21. CLEXANE [Concomitant]
     Active Substance: ENOXAPARIN SODIUM
     Indication: THROMBOSIS PROPHYLAXIS
     Dosage: 40 MG, FREQ:12 H;
     Route: 058
     Dates: start: 20201022
  22. CLEXANE [Concomitant]
     Active Substance: ENOXAPARIN SODIUM
     Dosage: UNK

REACTIONS (2)
  - Generalised tonic-clonic seizure [Recovered/Resolved]
  - Myoclonus [Not Recovered/Not Resolved]

NARRATIVE: CASE EVENT DATE: 20201107
